FAERS Safety Report 21378459 (Version 2)
Quarter: 2022Q3

REPORT INFORMATION
  Report Type: Spontaneous
  Country: KR (occurrence: KR)
  Receive Date: 20220927
  Receipt Date: 20220929
  Transmission Date: 20221026
  Serious: Yes (Hospitalization)
  Sender: FDA-Public Use
  Company Number: KR-SAMSUNG BIOEPIS-SB-2022-23768

PATIENT
  Age: 73 Year
  Sex: Female
  Weight: 49.2 kg

DRUGS (11)
  1. TRASTUZUMAB [Suspect]
     Active Substance: TRASTUZUMAB
     Indication: Metastatic gastric cancer
     Route: 065
     Dates: start: 20220603
  2. XELODA [Suspect]
     Active Substance: CAPECITABINE
     Indication: Metastatic gastric cancer
     Route: 065
     Dates: start: 20220603
  3. ESOMEPRAZOLE [Concomitant]
     Active Substance: ESOMEPRAZOLE
     Indication: Prophylaxis
     Route: 048
     Dates: start: 20220520
  4. REBAMIPIDE [Concomitant]
     Active Substance: REBAMIPIDE
     Indication: Prophylaxis
     Route: 048
     Dates: start: 20220520
  5. HERBALS [Concomitant]
     Active Substance: HERBALS
     Indication: Prophylaxis
     Route: 048
     Dates: start: 20220520
  6. MEGESTROL ACETATE [Concomitant]
     Active Substance: MEGESTROL ACETATE
     Indication: Prophylaxis
     Dosage: ONE PACK
     Route: 048
     Dates: start: 20220520
  7. MAGNESIUM OXIDE [Concomitant]
     Active Substance: MAGNESIUM OXIDE
     Indication: Prophylaxis
     Dosage: ONE PACK, ONCE AS REQUIRED (PRN)
     Route: 048
     Dates: start: 20220520
  8. POLYETHYLENE GLYCOL 4000 [Concomitant]
     Active Substance: POLYETHYLENE GLYCOL 4000
     Indication: Prophylaxis
     Dosage: ONE PACK, ONCE AS REQUIRED (PRN)
     Route: 048
     Dates: start: 20220520
  9. FRAGMIN [Concomitant]
     Active Substance: DALTEPARIN SODIUM
     Indication: Prophylaxis
     Route: 048
     Dates: start: 20220712
  10. ALUMINIUM HYDROXIDE;MAGNESIUM HYDROXIDE;OXETACAINE [Concomitant]
     Indication: Prophylaxis
     Dosage: ONE TABLET
     Route: 048
     Dates: start: 20220520
  11. NALOXONE HYDROCHLORIDE\OXYCODONE HYDROCHLORIDE [Concomitant]
     Active Substance: NALOXONE HYDROCHLORIDE\OXYCODONE HYDROCHLORIDE
     Indication: Prophylaxis
     Dosage: DOSE: 10/5 MILLIGRAM
     Route: 048
     Dates: start: 20220520

REACTIONS (2)
  - Urinary tract infection [Not Recovered/Not Resolved]
  - Product use issue [Unknown]

NARRATIVE: CASE EVENT DATE: 20220914
